FAERS Safety Report 4972994-7 (Version None)
Quarter: 2006Q2

REPORT INFORMATION
  Report Type: 
  Country: None (occurrence: None)
  Receive Date: 20060414
  Receipt Date: 20060228
  Transmission Date: 20061013
  Serious: Yes (Death, Disabling)
  Sender: FDA-Public Use
  Company Number: JP-JPN-A200600788

PATIENT
  Age: 68 Year
  Sex: Female
  Weight: 45 kg

DRUGS (18)
  1. VALTREX [Suspect]
     Indication: HERPES ZOSTER
     Route: 048
     Dates: start: 20060220, end: 20060223
  2. THYRADIN S [Concomitant]
     Dosage: 175MCG PER DAY
     Route: 048
  3. WARFARIN [Concomitant]
     Route: 048
  4. FLOMOX [Concomitant]
     Route: 048
  5. BAKTAR [Concomitant]
     Route: 048
  6. NEUROTROPIN [Concomitant]
     Route: 065
  7. MUCOSTA [Concomitant]
     Dosage: 300MG PER DAY
     Route: 048
  8. LENDORMIN [Concomitant]
     Dosage: .25MG PER DAY
     Route: 048
  9. SINGULAIR [Concomitant]
     Dosage: 10MG PER DAY
     Route: 048
  10. PROCYLIN [Concomitant]
     Dosage: 120MCG PER DAY
     Route: 048
  11. PONTAL [Concomitant]
     Route: 048
  12. ISOSORBIDE MONONITRATE [Concomitant]
     Dosage: 40MG PER DAY
     Route: 048
  13. GASTER D [Concomitant]
     Dosage: 10MG PER DAY
     Route: 048
  14. MUCOSOLVAN [Concomitant]
     Dosage: 45MG PER DAY
     Route: 048
  15. MARZULENE [Concomitant]
     Dosage: .99G PER DAY
     Route: 048
  16. GASMOTIN [Concomitant]
     Dosage: 15MG PER DAY
     Route: 048
  17. PRECIPITATED CALCIUM CARBONATE [Concomitant]
     Dosage: 1.5G PER DAY
     Route: 048
  18. FALECALCITRIOL [Concomitant]
     Route: 048

REACTIONS (4)
  - CATHETER RELATED INFECTION [None]
  - DEPRESSED LEVEL OF CONSCIOUSNESS [None]
  - DISORIENTATION [None]
  - MEMORY IMPAIRMENT [None]
